FAERS Safety Report 20654618 (Version 11)
Quarter: 2024Q2

REPORT INFORMATION
  Report Type: Spontaneous
  Country: IN (occurrence: IN)
  Receive Date: 20220330
  Receipt Date: 20240618
  Transmission Date: 20240716
  Serious: Yes (Other)
  Sender: FDA-Public Use
  Company Number: IN-PFIZER INC-202200444611

PATIENT
  Age: 71 Year
  Sex: Female
  Weight: 80 kg

DRUGS (7)
  1. PALBOCICLIB [Suspect]
     Active Substance: PALBOCICLIB
     Indication: Breast cancer metastatic
     Dosage: 100 MG, CYCLIC (X3WK FOLLOW 1 WK OFF FOR 3 MONTH)
     Route: 048
     Dates: start: 202112
  2. PALBOCICLIB [Suspect]
     Active Substance: PALBOCICLIB
     Dosage: 100 MG, CYCLIC (X3WK FOLLOW 1 WK OFF FOR 3 MONTH)
     Route: 048
     Dates: start: 20211225
  3. PALBOCICLIB [Suspect]
     Active Substance: PALBOCICLIB
     Dosage: 100 MG, 1X/DAY
     Route: 048
  4. ZOLEDRONIC ACID [Concomitant]
     Active Substance: ZOLEDRONIC ACID
     Dosage: UNK
  5. LETROZOLE [Concomitant]
     Active Substance: LETROZOLE
     Dosage: 2 MG, 1X/DAY
  6. LETROZOLE [Concomitant]
     Active Substance: LETROZOLE
     Dosage: 2.5 MG, 1X/DAY
  7. CALCIMAX [CALCIUM CARBONATE;COLECALCIFEROL] [Concomitant]
     Dosage: 1 TABLET OD

REACTIONS (15)
  - Blood pressure increased [Unknown]
  - Skin disorder [Unknown]
  - Heart rate increased [Unknown]
  - Platelet count decreased [Unknown]
  - Respiratory rate increased [Unknown]
  - Oedema peripheral [Unknown]
  - Breast disorder [Unknown]
  - Haemoglobin decreased [Unknown]
  - Neoplasm progression [Unknown]
  - Arthralgia [Unknown]
  - Pallor [Unknown]
  - Abdominal pain [Unknown]
  - Diarrhoea [Unknown]
  - Constipation [Unknown]
  - Vulvovaginitis [Unknown]
